FAERS Safety Report 7262813-0 (Version None)
Quarter: 2011Q1

REPORT INFORMATION
  Report Type: 
  Country: None (occurrence: None)
  Receive Date: 20110130
  Receipt Date: 20101112
  Transmission Date: 20110831
  Serious: No
  Sender: FDA-Public Use
  Company Number: US-ABBOTT-10P-163-0670689-00

PATIENT
  Sex: Female
  Weight: 60.382 kg

DRUGS (7)
  1. LEXAPRO [Concomitant]
     Indication: DEPRESSION
  2. HUMIRA [Suspect]
     Indication: RHEUMATOID ARTHRITIS
     Dates: start: 20100701
  3. PRENATAL VITAMINS [Concomitant]
     Indication: GASTRIC BYPASS
  4. PREDNISONE [Concomitant]
     Indication: RHEUMATOID ARTHRITIS
  5. IRON [Concomitant]
     Indication: GASTRIC BYPASS
  6. NEXIUM [Concomitant]
     Indication: GASTRIC ULCER
  7. WELLBUTRIN [Concomitant]
     Indication: DEPRESSION

REACTIONS (2)
  - INJECTION SITE HAEMATOMA [None]
  - DEVICE MALFUNCTION [None]
